FAERS Safety Report 10344757 (Version 1)
Quarter: 2014Q3

REPORT INFORMATION
  Report Type: Spontaneous
  Country: IT (occurrence: None)
  Receive Date: 20140724
  Receipt Date: 20140724
  Transmission Date: 20150326
  Serious: Yes (Hospitalization)
  Sender: FDA-Public Use
  Company Number: VAL_03225_2014

PATIENT
  Age: 56 Year
  Sex: Male

DRUGS (2)
  1. CABERGOLINE. [Suspect]
     Active Substance: CABERGOLINE
     Indication: PRODUCT USED FOR UNKNOWN INDICATION
  2. BROMOCRIPTINE\BROMOCRIPTINE MESYLATE [Suspect]
     Active Substance: BROMOCRIPTINE\BROMOCRIPTINE MESYLATE
     Indication: PRODUCT USED FOR UNKNOWN INDICATION

REACTIONS (14)
  - Sinus tachycardia [None]
  - Adenoma benign [None]
  - Pleural effusion [None]
  - Cardiac failure acute [None]
  - Mitral valve incompetence [None]
  - Pulmonary arterial hypertension [None]
  - Ventricular hypokinesia [None]
  - Blood pressure decreased [None]
  - Respiratory acidosis [None]
  - Pulmonary embolism [None]
  - Cardiomegaly [None]
  - Arteriosclerosis [None]
  - Tricuspid valve incompetence [None]
  - Cardiac valve disease [None]
